FAERS Safety Report 25588897 (Version 1)
Quarter: 2025Q3

REPORT INFORMATION
  Report Type: Spontaneous
  Country: US (occurrence: US)
  Receive Date: 20250722
  Receipt Date: 20250722
  Transmission Date: 20251021
  Serious: Yes (Hospitalization)
  Sender: MERCK SHARP & DOHME LLC
  Company Number: US-009507513-2309892

PATIENT
  Age: 75 Year
  Sex: Female

DRUGS (1)
  1. DAPTOMYCIN [Suspect]
     Active Substance: DAPTOMYCIN
     Indication: Injection site ulcer

REACTIONS (2)
  - Eosinophilic pneumonia acute [Recovering/Resolving]
  - Pyoderma gangrenosum [Recovering/Resolving]
